FAERS Safety Report 26129539 (Version 1)
Quarter: 2025Q4

REPORT INFORMATION
  Report Type: Spontaneous
  Country: EU (occurrence: EU)
  Receive Date: 20251208
  Receipt Date: 20251208
  Transmission Date: 20260118
  Serious: Yes (Disabling, Other)
  Sender: AUROBINDO
  Company Number: EU-LUNDBECK-DKLU4021703

PATIENT
  Age: 27 Year
  Sex: Male

DRUGS (8)
  1. ESCITALOPRAM [Suspect]
     Active Substance: ESCITALOPRAM OXALATE
     Indication: Obsessive-compulsive disorder
     Dosage: 15 MILLIGRAM
     Route: 065
  2. ESCITALOPRAM [Suspect]
     Active Substance: ESCITALOPRAM OXALATE
     Indication: Affective disorder
  3. ESCITALOPRAM [Suspect]
     Active Substance: ESCITALOPRAM OXALATE
     Indication: Generalised anxiety disorder
  4. PREGABALIN [Suspect]
     Active Substance: PREGABALIN
     Indication: Product used for unknown indication
     Dosage: 25 MILLIGRAM, ONCE A DAY
     Route: 065
  5. VORTIOXETINE [Suspect]
     Active Substance: VORTIOXETINE
     Indication: Obsessive-compulsive disorder
     Dosage: 5 MILLIGRAM
     Route: 065
  6. VORTIOXETINE [Suspect]
     Active Substance: VORTIOXETINE
     Indication: Affective disorder
     Dosage: 10 MILLIGRAM
     Route: 065
  7. VORTIOXETINE [Suspect]
     Active Substance: VORTIOXETINE
     Indication: Generalised anxiety disorder
     Dosage: 20 MILLIGRAM
     Route: 065
  8. VORTIOXETINE [Suspect]
     Active Substance: VORTIOXETINE
     Dosage: 30 MILLIGRAM, ONCE A DAY (OVERDOSE: 30MG)
     Route: 065

REACTIONS (9)
  - Disability [Recovering/Resolving]
  - Obsessive-compulsive disorder [Recovering/Resolving]
  - Intrusive thoughts [Recovering/Resolving]
  - Anxiety [Recovering/Resolving]
  - Insomnia [Recovering/Resolving]
  - Emotional distress [Recovering/Resolving]
  - Therapy cessation [Recovering/Resolving]
  - Product use in unapproved indication [Unknown]
  - Prescribed overdose [Unknown]
